FAERS Safety Report 8598455-4 (Version None)
Quarter: 2012Q3

REPORT INFORMATION
  Report Type: 
  Country: None (occurrence: None)
  Receive Date: 20120806
  Receipt Date: 20120806
  Transmission Date: 20120928
  Serious: Yes (Hospitalization)
  Sender: FDA-Public Use
  Company Number: None

PATIENT
  Sex: Male
  Weight: 103.64 kg

DRUGS (5)
  1. BEVACIZUMAB (RHUMAB VEGF) [Suspect]
     Dosage: 1036 MG
  2. BENICAR [Concomitant]
  3. IRINOTECAN HYDROCHLORIDE [Suspect]
     Dosage: 640 MG
  4. TOPROL-XL [Concomitant]
  5. ELOXATIN [Suspect]
     Dosage: 360 MG

REACTIONS (1)
  - BLOOD PRESSURE INCREASED [None]
